FAERS Safety Report 10801300 (Version 2)
Quarter: 2015Q1

REPORT INFORMATION
  Report Type: Report from Study
  Country: US (occurrence: US)
  Receive Date: 20150217
  Receipt Date: 20150331
  Transmission Date: 20150721
  Serious: Yes (Hospitalization)
  Sender: FDA-Public Use
  Company Number: US-BEH-2015048768

PATIENT
  Sex: Male

DRUGS (3)
  1. ZEMAIRA [Suspect]
     Active Substance: .ALPHA.1-PROTEINASE INHIBITOR HUMAN
     Indication: CHRONIC OBSTRUCTIVE PULMONARY DISEASE
     Dosage: 5580 MG-5934 MG DEPENDING ON WEIGHT
     Dates: start: 20150108, end: 20150108
  2. ZEMAIRA [Suspect]
     Active Substance: .ALPHA.1-PROTEINASE INHIBITOR HUMAN
     Indication: ALPHA-1 ANTI-TRYPSIN DEFICIENCY
     Dosage: 5580 MG-5934 MG DEPENDING ON WEIGHT:5934 MG
     Dates: start: 20150122, end: 20150122
  3. ZEMAIRA [Suspect]
     Active Substance: .ALPHA.1-PROTEINASE INHIBITOR HUMAN
     Dosage: 5580 MG-5934 MG DEPENDING ON WEIGHT
     Dates: start: 20150115, end: 20150115

REACTIONS (1)
  - Chronic obstructive pulmonary disease [Unknown]
